FAERS Safety Report 8426613-8 (Version None)
Quarter: 2012Q2

REPORT INFORMATION
  Report Type: 
  Country: None (occurrence: None)
  Receive Date: 20120323
  Receipt Date: 20110823
  Transmission Date: 20120825
  Serious: Yes (Other)
  Sender: FDA-Public Use
  Company Number: 163-21880-11080416

PATIENT
  Age: 44 Year
  Sex: Male
  Weight: 76.2043 kg

DRUGS (4)
  1. REVLIMID [Suspect]
     Indication: MULTIPLE MYELOMA
     Dosage: 25 MG, 1 IN 1 D, PO
     Route: 048
     Dates: start: 20110705
  2. SOLU-MEDROL [Concomitant]
  3. ASPIRIN [Concomitant]
  4. VELCADE [Concomitant]

REACTIONS (1)
  - WEIGHT DECREASED [None]
